FAERS Safety Report 22699271 (Version 9)
Quarter: 2025Q1

REPORT INFORMATION
  Report Type: Report from Study
  Country: AU (occurrence: AU)
  Receive Date: 20230713
  Receipt Date: 20250320
  Transmission Date: 20250409
  Serious: No
  Sender: ROCHE
  Company Number: AU-ROCHE-3130223

PATIENT
  Age: 37 Year
  Sex: Female
  Weight: 69.25 kg

DRUGS (4)
  1. ALECTINIB [Suspect]
     Active Substance: ALECTINIB
     Indication: Non-small cell lung cancer metastatic
     Route: 048
     Dates: start: 201911
  2. ALECTINIB [Suspect]
     Active Substance: ALECTINIB
     Route: 048
     Dates: start: 20210909
  3. LYRICA [Concomitant]
     Active Substance: PREGABALIN
     Indication: Oedema
     Route: 048
     Dates: start: 20220201
  4. LYRICA [Concomitant]
     Active Substance: PREGABALIN
     Indication: Neuropathy peripheral

REACTIONS (6)
  - Pyrexia [Recovered/Resolved]
  - Diarrhoea [Recovered/Resolved]
  - Nausea [Recovered/Resolved]
  - Rhinitis allergic [Recovering/Resolving]
  - Dry eye [Recovered/Resolved]
  - Neuralgia [Recovered/Resolved]

NARRATIVE: CASE EVENT DATE: 20220123
